FAERS Safety Report 17514246 (Version 1)
Quarter: 2020Q1

REPORT INFORMATION
  Report Type: Spontaneous
  Country: PL (occurrence: PL)
  Receive Date: 20200306
  Receipt Date: 20200306
  Transmission Date: 20200409
  Serious: Yes (Hospitalization, Other)
  Sender: FDA-Public Use
  Company Number: PL-AUROBINDO-AUR-APL-2020-010542

PATIENT
  Sex: Male

DRUGS (3)
  1. LAMOTRIGINE. [Suspect]
     Active Substance: LAMOTRIGINE
     Indication: EPILEPSY
     Dosage: UNK
     Route: 065
  2. VALPROIC ACID. [Suspect]
     Active Substance: VALPROIC ACID
     Indication: EPILEPSY
     Dosage: UNK
     Route: 065
  3. LEVETIRACETAM. [Suspect]
     Active Substance: LEVETIRACETAM
     Indication: EPILEPSY
     Dosage: UNK
     Route: 065

REACTIONS (21)
  - Haemoglobin decreased [Unknown]
  - Blister [Recovered/Resolved]
  - Asthenia [Unknown]
  - Skin discolouration [Not Recovered/Not Resolved]
  - C-reactive protein increased [Unknown]
  - Skin lesion [Recovered/Resolved]
  - Rash maculo-papular [Recovered/Resolved]
  - Stevens-Johnson syndrome [Recovered/Resolved]
  - Blood albumin decreased [Unknown]
  - Pemphigoid [Recovered/Resolved]
  - Condition aggravated [Unknown]
  - Nikolsky^s sign [Unknown]
  - Dehydration [Unknown]
  - Epidermolysis [Recovered/Resolved]
  - Platelet count decreased [Unknown]
  - Toxic epidermal necrolysis [Recovered/Resolved]
  - Dysuria [Unknown]
  - Epilepsy [Unknown]
  - Pyrexia [Unknown]
  - Influenza like illness [Unknown]
  - Headache [Unknown]
